FAERS Safety Report 10031364 (Version 1)
Quarter: 2014Q1

REPORT INFORMATION
  Report Type: Other
  Country: GB (occurrence: GB)
  Receive Date: 20140324
  Receipt Date: 20140324
  Transmission Date: 20141002
  Serious: Yes (Hospitalization, Other)
  Sender: FDA-Public Use
  Company Number: GB-SUN PHARMACEUTICAL INDUSTRIES LTD-2014SUN00619

PATIENT
  Sex: Male

DRUGS (1)
  1. BACLOFEN [Suspect]
     Indication: PRODUCT USED FOR UNKNOWN INDICATION
     Dosage: 18.97 UG, UNK

REACTIONS (3)
  - Sepsis [Not Recovered/Not Resolved]
  - Implant site infection [Not Recovered/Not Resolved]
  - CSF white blood cell count increased [Not Recovered/Not Resolved]
